FAERS Safety Report 11056674 (Version 1)
Quarter: 2015Q2

REPORT INFORMATION
  Report Type: Spontaneous
  Country: US (occurrence: US)
  Receive Date: 20150422
  Receipt Date: 20150422
  Transmission Date: 20150821
  Serious: No
  Sender: FDA-Public Use
  Company Number: US-TARO-2014TAR00433

PATIENT
  Sex: Female

DRUGS (1)
  1. LAGICAM ANTIFUNGAL [Suspect]
     Active Substance: MICONAZOLE NITRATE
     Route: 067

REACTIONS (2)
  - Application site pain [Unknown]
  - Application site pruritus [Unknown]
